FAERS Safety Report 8243239-X (Version None)
Quarter: 2012Q1

REPORT INFORMATION
  Report Type: 
  Country: None (occurrence: None)
  Receive Date: 20120329
  Receipt Date: 20120321
  Transmission Date: 20120608
  Serious: Yes (Hospitalization)
  Sender: FDA-Public Use
  Company Number: ES-B.I. PHARMACEUTICALS,INC./RIDGEFIELD-2012-ES-00120ES

PATIENT
  Age: 75 Year
  Sex: Male

DRUGS (12)
  1. OMEPRAZOLE [Concomitant]
  2. ACETAMINOPHEN [Concomitant]
  3. IBUPROFEN [Suspect]
     Indication: PAIN
     Dosage: 400 MG
     Route: 048
     Dates: start: 20110801
  4. SINTROM [Concomitant]
  5. ALLOPURINOL [Concomitant]
  6. LYRICA [Concomitant]
     Indication: TREMOR
     Dosage: 300 MG
     Route: 048
     Dates: start: 20111025
  7. DOLPAR [Concomitant]
     Indication: HYPERTENSION
     Dosage: 200 MG
     Route: 048
     Dates: start: 20111010
  8. DERMATRANS [Concomitant]
  9. FUROSEMIDE [Suspect]
     Indication: HYPERTENSION
     Dosage: 80 MG
     Route: 048
     Dates: start: 20080501, end: 20111124
  10. CARVEDILOL [Concomitant]
  11. TWYNSTA [Suspect]
     Indication: HYPERTENSION
     Dosage: 80 MG
     Route: 048
     Dates: start: 20110810, end: 20111124
  12. AMLODIPINO [Concomitant]
     Indication: HYPERTENSION
     Dosage: 5 MG
     Route: 048
     Dates: start: 20110810, end: 20111124

REACTIONS (3)
  - TREMOR [None]
  - RENAL FAILURE ACUTE [None]
  - DRUG INTERACTION [None]
